FAERS Safety Report 5022181-1 (Version None)
Quarter: 2006Q2

REPORT INFORMATION
  Report Type: 
  Country: None (occurrence: None)
  Receive Date: 20060605
  Receipt Date: 20060523
  Transmission Date: 20061013
  Serious: Yes (Hospitalization)
  Sender: FDA-Public Use
  Company Number: 2006067856

PATIENT
  Age: 65 Year
  Sex: Male
  Weight: 90 kg

DRUGS (2)
  1. SUTENT [Suspect]
     Indication: HEPATIC NEOPLASM MALIGNANT
     Dosage: 50 MG (50 MG, 1 IN 1 D), ORAL
     Route: 048
     Dates: start: 20060509, end: 20060519
  2. PROPRANOLOL [Concomitant]

REACTIONS (7)
  - ASPARTATE AMINOTRANSFERASE INCREASED [None]
  - BLOOD ALKALINE PHOSPHATASE INCREASED [None]
  - CONFUSIONAL STATE [None]
  - GAMMA-GLUTAMYLTRANSFERASE INCREASED [None]
  - HYPERBILIRUBINAEMIA [None]
  - SOMNOLENCE [None]
  - THROMBOCYTOPENIA [None]
